FAERS Safety Report 7678669-8 (Version None)
Quarter: 2011Q3

REPORT INFORMATION
  Report Type: 
  Country: None (occurrence: None)
  Receive Date: 20110811
  Receipt Date: 20110712
  Transmission Date: 20111222
  Serious: No
  Sender: FDA-Public Use
  Company Number: US-BAYER-2011-061404

PATIENT
  Age: 30 Year
  Sex: Female
  Weight: 67.12 kg

DRUGS (2)
  1. SYNTHROID [Concomitant]
  2. ALEVE (CAPLET) [Suspect]
     Indication: MUSCLE SPASMS
     Dosage: 220 MG, ONCE, BOTTLE COUNT 20S
     Route: 048
     Dates: start: 20110710, end: 20110710

REACTIONS (1)
  - NO ADVERSE EVENT [None]
